FAERS Safety Report 7377794-9 (Version None)
Quarter: 2011Q1

REPORT INFORMATION
  Report Type: 
  Country: None (occurrence: None)
  Receive Date: 20110328
  Receipt Date: 20110317
  Transmission Date: 20110831
  Serious: Yes (Hospitalization, Other)
  Sender: FDA-Public Use
  Company Number: US-ROCHE-724630

PATIENT
  Sex: Male
  Weight: 68 kg

DRUGS (4)
  1. ACCUTANE [Suspect]
     Indication: ACNE
     Dosage: STOP DATE: 10 SEP/OCT 2002
     Route: 048
     Dates: start: 20020313, end: 20020910
  2. PREDNISONE [Concomitant]
  3. ASACOL [Concomitant]
     Dosage: 3 TABLETS DAILY
  4. HYDROCORTISONE [Suspect]
     Route: 065

REACTIONS (14)
  - CROHN'S DISEASE [None]
  - OSTEOARTHRITIS [None]
  - APHTHOUS STOMATITIS [None]
  - INFLAMMATORY BOWEL DISEASE [None]
  - ANAL FISTULA [None]
  - INTESTINAL HAEMORRHAGE [None]
  - COLITIS ULCERATIVE [None]
  - THROMBOSIS [None]
  - OEDEMA PERIPHERAL [None]
  - ANAEMIA [None]
  - HERNIA [None]
  - RECTAL FISSURE [None]
  - CUSHINGOID [None]
  - ARTHRALGIA [None]
